FAERS Safety Report 5889719-3 (Version None)
Quarter: 2008Q3

REPORT INFORMATION
  Report Type: 
  Country: None (occurrence: None)
  Receive Date: 20080919
  Receipt Date: 20080910
  Transmission Date: 20090109
  Serious: Yes (Other)
  Sender: FDA-Public Use
  Company Number: US-BAYER-200716986NA

PATIENT
  Age: 59 Year
  Sex: Male
  Weight: 82 kg

DRUGS (10)
  1. NEXAVAR [Suspect]
     Indication: METASTATIC RENAL CELL CARCINOMA
     Dosage: TOTAL DAILY DOSE: 800 MG  UNIT DOSE: 200 MG
     Route: 048
     Dates: start: 20051201, end: 20070801
  2. NEXAVAR [Suspect]
     Dosage: TOTAL DAILY DOSE: 800 MG  UNIT DOSE: 200 MG
     Route: 048
     Dates: start: 20080101
  3. BENICAR [Concomitant]
     Dosage: TOTAL DAILY DOSE: 40 MG
     Route: 048
  4. HYDROCHLOROTHIAZIDE [Concomitant]
     Dosage: TOTAL DAILY DOSE: 25 MG
     Route: 048
  5. GLYBURIDE [Concomitant]
     Dosage: TOTAL DAILY DOSE: 5 MG
     Route: 048
  6. ACTOS [Concomitant]
     Dosage: TOTAL DAILY DOSE: 30 MG
     Route: 048
  7. HUMULIN N [Concomitant]
     Dosage: TOTAL DAILY DOSE: 24 U
  8. MULTI-VITAMIN [Concomitant]
  9. NEURONTIN [Concomitant]
     Dosage: TOTAL DAILY DOSE: 900 MG
     Route: 048
  10. LORTAB [Concomitant]

REACTIONS (6)
  - BLOOD PRESSURE INCREASED [None]
  - CHEST PAIN [None]
  - LOCALISED INFECTION [None]
  - METASTATIC RENAL CELL CARCINOMA [None]
  - PATHOGEN RESISTANCE [None]
  - PATHOLOGICAL FRACTURE [None]
